FAERS Safety Report 25771165 (Version 1)
Quarter: 2025Q3

REPORT INFORMATION
  Report Type: Spontaneous
  Country: US (occurrence: US)
  Receive Date: 20250908
  Receipt Date: 20250908
  Transmission Date: 20251021
  Serious: No
  Sender: DOMPE FARMACEUTICI
  Company Number: US-FARMAPROD-202504-1068

PATIENT
  Sex: Female

DRUGS (7)
  1. OXERVATE [Suspect]
     Active Substance: CENEGERMIN-BKBJ
     Indication: Neurotrophic keratopathy
     Route: 047
     Dates: start: 20250324
  2. UNSPECIFIED INGREDIENT [Concomitant]
     Active Substance: UNSPECIFIED INGREDIENT
  3. VITAMIN B COMPLEX [Concomitant]
     Active Substance: CYANOCOBALAMIN\DEXPANTHENOL\NIACINAMIDE\PYRIDOXINE HYDROCHLORIDE\RIBOFLAVIN 5^-PHOSPHATE SODIUM\THIA
  4. HERBALS\TURMERIC [Concomitant]
     Active Substance: HERBALS\TURMERIC
  5. OMEGA 3 6 9 COMPLEX [Concomitant]
  6. OLMESARTAN MEDOXOMIL [Concomitant]
     Active Substance: OLMESARTAN MEDOXOMIL
  7. AMLODIPINE BESYLATE [Concomitant]
     Active Substance: AMLODIPINE BESYLATE

REACTIONS (7)
  - Periorbital pain [Unknown]
  - Oropharyngeal pain [Unknown]
  - Nasal discomfort [Unknown]
  - Eyelid pain [Unknown]
  - Ear swelling [Unknown]
  - Lymphadenopathy [Unknown]
  - Eye pain [Not Recovered/Not Resolved]
